FAERS Safety Report 21239458 (Version 1)
Quarter: 2022Q3

REPORT INFORMATION
  Report Type: Spontaneous
  Country: US (occurrence: None)
  Receive Date: 20220821
  Receipt Date: 20220821
  Transmission Date: 20221027
  Serious: No
  Sender: FDA-Public Use
  Company Number: None

PATIENT
  Age: 39 Year
  Sex: Female
  Weight: 92.25 kg

DRUGS (17)
  1. PAXLOVID [Suspect]
     Active Substance: NIRMATRELVIR\RITONAVIR
     Indication: COVID-19
     Dosage: OTHER QUANTITY : 1 PACK;?FREQUENCY : TWICE A DAY;?
     Route: 048
     Dates: start: 20220820
  2. GLIPIZIDE [Concomitant]
     Active Substance: GLIPIZIDE
  3. OZEMPIC [Concomitant]
     Active Substance: SEMAGLUTIDE
  4. XIIDRA [Concomitant]
     Active Substance: LIFITEGRAST
  5. BUPROPION [Concomitant]
     Active Substance: BUPROPION
  6. ATORVASTATIN [Concomitant]
     Active Substance: ATORVASTATIN
  7. ADDERALL [Concomitant]
     Active Substance: AMPHETAMINE ASPARTATE\AMPHETAMINE SULFATE\DEXTROAMPHETAMINE SACCHARATE\DEXTROAMPHETAMINE SULFATE
  8. ZYRTEC [Concomitant]
     Active Substance: CETIRIZINE HYDROCHLORIDE
  9. HYDROXYZINE [Concomitant]
     Active Substance: HYDROXYZINE HYDROCHLORIDE
  10. SPIRONOLACTONE [Concomitant]
     Active Substance: SPIRONOLACTONE
  11. DOXYCYCLINE [Concomitant]
     Active Substance: DOXYCYCLINE
  12. MONTELUKAST [Concomitant]
     Active Substance: MONTELUKAST SODIUM
  13. dexcom [Concomitant]
  14. FISH OIL [Concomitant]
     Active Substance: FISH OIL
  15. VITAMIN B COMPLEX [Concomitant]
     Active Substance: CYANOCOBALAMIN\DEXPANTHENOL\NIACINAMIDE\PYRIDOXINE HYDROCHLORIDE\RIBOFLAVIN 5^-PHOSPHATE SODIUM\THIA
  16. MAGNESIUM [Concomitant]
     Active Substance: MAGNESIUM
  17. VITAMINS [Concomitant]
     Active Substance: VITAMINS

REACTIONS (1)
  - Dysgeusia [None]

NARRATIVE: CASE EVENT DATE: 20220820
